FAERS Safety Report 6119743-7 (Version None)
Quarter: 2009Q1

REPORT INFORMATION
  Report Type: 
  Country: None (occurrence: None)
  Receive Date: 20090316
  Receipt Date: 20090306
  Transmission Date: 20090719
  Serious: Yes (Hospitalization, Disabling)
  Sender: FDA-Public Use
  Company Number: US-MERCK-0810USA05276

PATIENT
  Age: 68 Year
  Sex: Female

DRUGS (2)
  1. FOSAMAX [Suspect]
     Indication: OSTEOPOROSIS PROPHYLAXIS
     Route: 048
     Dates: start: 20010101, end: 20070101
  2. FOSAMAX [Suspect]
     Indication: OSTEOPOROSIS
     Route: 048
     Dates: start: 20010101, end: 20070101

REACTIONS (8)
  - INTRACRANIAL ANEURYSM [None]
  - JAW DISORDER [None]
  - ORAL DISORDER [None]
  - OSTEITIS [None]
  - OSTEONECROSIS [None]
  - RESORPTION BONE INCREASED [None]
  - TOOTH ABSCESS [None]
  - TOOTH DISORDER [None]
